FAERS Safety Report 4743493-2 (Version None)
Quarter: 2005Q3

REPORT INFORMATION
  Report Type: 
  Country: None (occurrence: None)
  Receive Date: 20050810
  Receipt Date: 20050810
  Transmission Date: 20060218
  Serious: Yes (Life-Threatening)
  Sender: FDA-Public Use
  Company Number: None

PATIENT
  Age: 60 Year
  Sex: Female
  Weight: 70.3075 kg

DRUGS (1)
  1. FENTANYL [Suspect]
     Indication: COMPLEX REGIONAL PAIN SYNDROME
     Dosage: 125 MCG TRANSDERMAL
     Route: 062

REACTIONS (10)
  - ACCIDENTAL OVERDOSE [None]
  - CARDIAC DISORDER [None]
  - DEHYDRATION [None]
  - DYSPNOEA [None]
  - EUPHORIC MOOD [None]
  - FEELING ABNORMAL [None]
  - FEELING HOT [None]
  - LOSS OF CONSCIOUSNESS [None]
  - PHARMACEUTICAL PRODUCT COMPLAINT [None]
  - PSYCHOMOTOR HYPERACTIVITY [None]
